FAERS Safety Report 9348362 (Version 1)
Quarter: 2013Q2

REPORT INFORMATION
  Report Type: Spontaneous
  Country: US (occurrence: None)
  Receive Date: 20130613
  Receipt Date: 20130613
  Transmission Date: 20140414
  Serious: Yes (Death)
  Sender: FDA-Public Use
  Company Number: None

PATIENT
  Age: 81 Year
  Sex: Male
  Weight: 91 kg

DRUGS (1)
  1. XARELTO 15 MG JANSSEN [Suspect]
     Indication: ATRIAL FIBRILLATION
     Dosage: 15 MG ONCE DAILY BY MOUTH?
     Route: 048
     Dates: start: 20130530

REACTIONS (2)
  - Mental status changes [None]
  - Haemorrhage intracranial [None]
